FAERS Safety Report 9291730 (Version 2)
Quarter: 2013Q3

REPORT INFORMATION
  Report Type: Report from Study
  Country: CN (occurrence: CN)
  Receive Date: 20130516
  Receipt Date: 20130726
  Transmission Date: 20140515
  Serious: Yes (Hospitalization, Other)
  Sender: FDA-Public Use
  Company Number: CN-ROCHE-1224737

PATIENT
  Sex: Male
  Weight: 65 kg

DRUGS (4)
  1. CELLCEPT [Suspect]
     Indication: RENAL TRANSPLANT
     Route: 048
     Dates: start: 20120601, end: 201207
  2. TACROLIMUS [Concomitant]
     Indication: RENAL TRANSPLANT
     Route: 048
     Dates: start: 20120601
  3. MYCOPHENOLATE MOFETIL (NON-ROCHE) [Concomitant]
     Indication: RENAL TRANSPLANT
     Dosage: SAIKEPING: TRADE NAME
     Route: 048
  4. PREDNISONE ACETATE [Concomitant]
     Route: 048

REACTIONS (6)
  - Laryngeal neoplasm [Unknown]
  - Blood glucose increased [Recovering/Resolving]
  - Dysphonia [Unknown]
  - Blood glucose increased [Not Recovered/Not Resolved]
  - Glucose urine present [Not Recovered/Not Resolved]
  - Hydrocele [Not Recovered/Not Resolved]
